FAERS Safety Report 5144418-0 (Version None)
Quarter: 2006Q4

REPORT INFORMATION
  Report Type: 
  Country: None (occurrence: None)
  Receive Date: 20061031
  Receipt Date: 20061018
  Transmission Date: 20070319
  Serious: Yes (Other)
  Sender: FDA-Public Use
  Company Number: 2006127780

PATIENT
  Sex: Male
  Weight: 113.3993 kg

DRUGS (7)
  1. VIAGRA [Suspect]
     Indication: ERECTILE DYSFUNCTION
     Dosage: 50 MG (50 MG, AS NECESSARY)
  2. ULTRAM [Concomitant]
  3. ASPIRIN [Concomitant]
  4. ADVIL [Concomitant]
  5. LIPITOR [Concomitant]
  6. ENALAPRIL MALEATE [Concomitant]
  7. METFORMIN HCL [Concomitant]

REACTIONS (5)
  - DRUG INEFFECTIVE [None]
  - GLUCOSE TOLERANCE IMPAIRED [None]
  - IMPAIRED HEALING [None]
  - KNEE OPERATION [None]
  - POSTOPERATIVE INFECTION [None]
